FAERS Safety Report 9473444 (Version 2)
Quarter: 2014Q3

REPORT INFORMATION
  Report Type: Spontaneous
  Country: US (occurrence: US)
  Receive Date: 20130823
  Receipt Date: 20140808
  Transmission Date: 20150326
  Serious: Yes (Other)
  Sender: FDA-Public Use
  Company Number: US-BRISTOL-MYERS SQUIBB COMPANY-18994483

PATIENT
  Age: 62 Year
  Sex: Female
  Weight: 73.47 kg

DRUGS (8)
  1. LISINOPRIL. [Concomitant]
     Active Substance: LISINOPRIL
     Dosage: TABS?20-UNITS NOS
     Route: 048
  2. SPRYCEL (CML) TABS 50 MG [Suspect]
     Active Substance: DASATINIB
     Indication: CHRONIC MYELOID LEUKAEMIA
     Dosage: TABS?LAST DOSE:04JUN13, 100 AND 70
     Route: 048
     Dates: start: 20100720, end: 20130520
  3. FUROSEMIDE. [Concomitant]
     Active Substance: FUROSEMIDE
     Dosage: TABS
     Route: 048
  4. BIOTIN [Concomitant]
     Active Substance: BIOTIN
     Dosage: CAPS
  5. VITAMIN C [Concomitant]
     Active Substance: ASCORBIC ACID
     Dosage: CAPS
  6. MELOXICAM. [Concomitant]
     Active Substance: MELOXICAM
     Dosage: TABS
  7. LIPITOR [Concomitant]
     Active Substance: ATORVASTATIN CALCIUM
     Dosage: TABS?40-UNITS NOS
     Route: 048
  8. MULTIVITAMIN [Concomitant]
     Active Substance: VITAMINS
     Dosage: CAPS

REACTIONS (1)
  - Pleural effusion [Recovering/Resolving]
